FAERS Safety Report 4839046-8 (Version None)
Quarter: 2005Q4

REPORT INFORMATION
  Report Type: 
  Country: None (occurrence: None)
  Receive Date: 20051031
  Receipt Date: 20050706
  Transmission Date: 20060501
  Serious: No
  Sender: FDA-Public Use
  Company Number: 200516597US

PATIENT
  Sex: 0

DRUGS (1)
  1. KETEK [Suspect]
     Dosage: PO
     Route: 048

REACTIONS (1)
  - ORAL DISCOMFORT [None]
